FAERS Safety Report 9718697 (Version 1)
Quarter: 2013Q4

REPORT INFORMATION
  Report Type: Not Available
  Country: US (occurrence: US)
  Receive Date: 20131125
  Receipt Date: 20131125
  Transmission Date: 20140711
  Serious: No
  Sender: FDA-Public Use
  Company Number: US-H. LUNDBECK A/S-DKLU1092147

PATIENT
  Sex: Female

DRUGS (3)
  1. ONFI [Suspect]
     Indication: PRODUCT USED FOR UNKNOWN INDICATION
  2. ONFI [Suspect]
     Dates: start: 20130626
  3. ONFI [Suspect]
     Dates: start: 20130626

REACTIONS (4)
  - Mood swings [Unknown]
  - Screaming [Unknown]
  - Anger [Unknown]
  - Insomnia [Unknown]
